FAERS Safety Report 16978293 (Version 1)
Quarter: 2019Q4

REPORT INFORMATION
  Report Type: Report from Study
  Country: SK (occurrence: SK)
  Receive Date: 20191031
  Receipt Date: 20191031
  Transmission Date: 20200122
  Serious: Yes (Other)
  Sender: FDA-Public Use
  Company Number: PHHY2015SK003996

PATIENT
  Age: 43 Year
  Sex: Female

DRUGS (3)
  1. NEUROL                                  /CZE/ [Concomitant]
     Active Substance: ALPRAZOLAM
     Indication: ANXIETY
     Dosage: UNK
     Route: 065
     Dates: start: 20141112, end: 20141119
  2. GILENYA [Suspect]
     Active Substance: FINGOLIMOD HYDROCHLORIDE
     Indication: MULTIPLE SCLEROSIS
     Dosage: UNK, QD
     Route: 048
     Dates: start: 20130520, end: 20180515
  3. MAGNESIUM [Concomitant]
     Active Substance: MAGNESIUM
     Indication: TETANUS
     Dosage: UNK
     Route: 065
     Dates: start: 20141113, end: 20141115

REACTIONS (3)
  - Neck pain [Recovered/Resolved]
  - Insomnia [Not Recovered/Not Resolved]
  - Viral infection [Recovered/Resolved]

NARRATIVE: CASE EVENT DATE: 20140101
